FAERS Safety Report 25111816 (Version 1)
Quarter: 2025Q1

REPORT INFORMATION
  Report Type: Spontaneous
  Country: US (occurrence: None)
  Receive Date: 20250320
  Receipt Date: 20250320
  Transmission Date: 20250409
  Serious: Yes (Life-Threatening, Other)
  Sender: FDA-CTU
  Company Number: None

PATIENT
  Age: 52 Year
  Sex: Female
  Weight: 85.4 kg

DRUGS (3)
  1. INAVOLISIB [Suspect]
     Active Substance: INAVOLISIB
     Indication: Hormone receptor positive HER2 negative breast cancer
     Dosage: FREQUENCY : DAILY;?
     Route: 048
     Dates: start: 20241118, end: 20241206
  2. PALBOCICLIB [Concomitant]
     Active Substance: PALBOCICLIB
     Dates: start: 20241108, end: 20241206
  3. FULVESTRANT [Concomitant]
     Active Substance: FULVESTRANT
     Dates: start: 20240910

REACTIONS (1)
  - Hypertransaminasaemia [None]

NARRATIVE: CASE EVENT DATE: 20241213
